FAERS Safety Report 8078265-7 (Version None)
Quarter: 2012Q1

REPORT INFORMATION
  Report Type: 
  Country: None (occurrence: None)
  Receive Date: 20120123
  Receipt Date: 20120113
  Transmission Date: 20120608
  Serious: Yes (Life-Threatening, Hospitalization, Other)
  Sender: FDA-Public Use
  Company Number: AUR-APL-2010-01972

PATIENT
  Age: 74 Year
  Sex: Female

DRUGS (5)
  1. AMIODARONE HCL [Suspect]
     Indication: VENTRICULAR TACHYCARDIA
  2. CARVEDILOL [Suspect]
     Indication: PRODUCT USED FOR UNKNOWN INDICATION
  3. FENTANYL CITRATE [Concomitant]
  4. CITALOPRAM HYDROBROMIDE [Suspect]
     Indication: PRODUCT USED FOR UNKNOWN INDICATION
  5. ONDANSETRON [Suspect]
     Indication: NAUSEA
     Dosage: (4 MG), INTRAVENOUS
     Route: 042

REACTIONS (7)
  - LONG QT SYNDROME [None]
  - SINUS BRADYCARDIA [None]
  - VENTRICULAR TACHYCARDIA [None]
  - HYPOKALAEMIA [None]
  - TORSADE DE POINTES [None]
  - ATRIOVENTRICULAR BLOCK FIRST DEGREE [None]
  - HYPOMAGNESAEMIA [None]
